FAERS Safety Report 7798829-5 (Version None)
Quarter: 2011Q4

REPORT INFORMATION
  Report Type: 
  Country: None (occurrence: None)
  Receive Date: 20111006
  Receipt Date: 20110926
  Transmission Date: 20120403
  Serious: Yes (Other)
  Sender: FDA-Public Use
  Company Number: AR-JNJFOC-20110911470

PATIENT
  Sex: Female

DRUGS (1)
  1. REMICADE [Suspect]
     Indication: RHEUMATOID ARTHRITIS
     Route: 042
     Dates: start: 20100401

REACTIONS (5)
  - VISION BLURRED [None]
  - INFUSION RELATED REACTION [None]
  - HYPERSENSITIVITY [None]
  - SWELLING [None]
  - DIZZINESS [None]
